FAERS Safety Report 5330087-3 (Version None)
Quarter: 2007Q2

REPORT INFORMATION
  Report Type: 
  Country: None (occurrence: None)
  Receive Date: 20070521
  Receipt Date: 20070507
  Transmission Date: 20071010
  Serious: Yes (Other)
  Sender: FDA-Public Use
  Company Number: CH-ROCHE-496525

PATIENT
  Age: 89 Year
  Sex: Male
  Weight: 51 kg

DRUGS (11)
  1. ROCEPHIN [Suspect]
     Indication: PYELONEPHRITIS
     Route: 065
     Dates: start: 20060929, end: 20061008
  2. ROCEPHIN [Suspect]
     Route: 065
     Dates: start: 20061012, end: 20061016
  3. ALDACTONE [Suspect]
     Dosage: FORM: FILM COATED TABLETS
     Route: 048
     Dates: start: 20061025, end: 20061105
  4. ALDACTONE [Suspect]
     Route: 048
     Dates: start: 20061120, end: 20061123
  5. VENOFER [Suspect]
     Indication: DRUG USE FOR UNKNOWN INDICATION
     Route: 041
     Dates: start: 20061103, end: 20061105
  6. LISITRIL [Suspect]
     Indication: DRUG USE FOR UNKNOWN INDICATION
     Dosage: DRUG NAME: LISITRIL 5
     Route: 048
     Dates: start: 20061006, end: 20061009
  7. LISITRIL [Suspect]
     Route: 048
     Dates: start: 20061117
  8. DIGOXIN [Concomitant]
     Dosage: DRUG NAME: DIGOXIN-SANDOZ
     Route: 048
     Dates: start: 20061004
  9. NEXIUM [Concomitant]
     Route: 048
     Dates: start: 20061012
  10. SINTROM [Concomitant]
     Dosage: TAKEN AS NECESSARY
     Route: 048
     Dates: start: 20061025
  11. ASPIRIN [Concomitant]
     Route: 048
     Dates: start: 20060929, end: 20061008

REACTIONS (2)
  - HENOCH-SCHONLEIN PURPURA [None]
  - RENAL FAILURE [None]
